FAERS Safety Report 7767477-5 (Version None)
Quarter: 2011Q3

REPORT INFORMATION
  Report Type: 
  Country: None (occurrence: None)
  Receive Date: 20110922
  Receipt Date: 20110912
  Transmission Date: 20111222
  Serious: Yes (Other)
  Sender: FDA-Public Use
  Company Number: US-BAYER-2011-084904

PATIENT
  Sex: Female

DRUGS (2)
  1. METHYLPREDNISOLONE [Concomitant]
     Dosage: UNK
  2. MIRENA [Suspect]
     Dosage: UNK
     Dates: start: 20090101

REACTIONS (3)
  - ERYTHEMA [None]
  - RASH [None]
  - SKIN DISCOLOURATION [None]
